FAERS Safety Report 5739707-2 (Version None)
Quarter: 2008Q2

REPORT INFORMATION
  Report Type: 
  Country: None (occurrence: None)
  Receive Date: 20080513
  Receipt Date: 20080429
  Transmission Date: 20081010
  Serious: Yes (Other)
  Sender: FDA-Public Use
  Company Number: GXKR2008CH04074

PATIENT
  Age: 31 Year
  Sex: Female

DRUGS (5)
  1. DICLOFENAC SODIUM [Suspect]
     Indication: BACK PAIN
     Dosage: 75 MG, BID
     Dates: start: 20080211, end: 20080213
  2. OTRIVIN [Suspect]
     Dates: start: 20080101, end: 20080201
  3. LANSOPRAZOLE [Concomitant]
  4. ELEVIT PRENATAL VITAMINS [Concomitant]
  5. ACETAMINOPHEN [Concomitant]

REACTIONS (7)
  - ABORTION INDUCED [None]
  - FOETAL MOVEMENTS DECREASED [None]
  - INFLAMMATION [None]
  - INTRA-UTERINE DEATH [None]
  - MATERNAL DRUGS AFFECTING FOETUS [None]
  - PLACENTAL DISORDER [None]
  - PLACENTAL INFARCTION [None]
